FAERS Safety Report 13855579 (Version 4)
Quarter: 2019Q1

REPORT INFORMATION
  Report Type: Spontaneous
  Country: US (occurrence: US)
  Receive Date: 20170810
  Receipt Date: 20190108
  Transmission Date: 20190417
  Serious: Yes (Hospitalization)
  Sender: FDA-Public Use
  Company Number: US-VIFOR (INTERNATIONAL) INC.-VIT-2017-04901

PATIENT
  Age: 46 Year
  Sex: Male
  Weight: 136.2 kg

DRUGS (18)
  1. VENLAFAXINE HCL [Concomitant]
     Active Substance: VENLAFAXINE HYDROCHLORIDE
  2. LANTUS [Concomitant]
     Active Substance: INSULIN GLARGINE
  3. HYDRALAZINE HCL [Concomitant]
     Active Substance: HYDRALAZINE HYDROCHLORIDE
  4. FLAXSEED [Concomitant]
     Active Substance: FLAX SEED
  5. VELTASSA [Suspect]
     Active Substance: PATIROMER
     Indication: HYPERKALAEMIA
     Route: 048
     Dates: start: 20160422, end: 201803
  6. NORCO [Concomitant]
     Active Substance: ACETAMINOPHEN\HYDROCODONE BITARTRATE
  7. GABAPENTIN. [Concomitant]
     Active Substance: GABAPENTIN
  8. FUROSEMIDE. [Concomitant]
     Active Substance: FUROSEMIDE
  9. NOVOLOG MIX 70/30 [Concomitant]
     Active Substance: INSULIN ASPART
  10. BACLOFEN. [Concomitant]
     Active Substance: BACLOFEN
  11. LIPITOR [Concomitant]
     Active Substance: ATORVASTATIN CALCIUM
  12. ASPIR 81 [Concomitant]
     Active Substance: ASPIRIN
  13. COREG [Concomitant]
     Active Substance: CARVEDILOL
  14. VITAMIN B COMPLEX C [Concomitant]
  15. TENEX [Concomitant]
     Active Substance: GUANFACINE HYDROCHLORIDE
  16. VICTOZA [Concomitant]
     Active Substance: LIRAGLUTIDE
  17. GLUCOSAMINE SULFATE [Concomitant]
     Active Substance: GLUCOSAMINE SULFATE
  18. AMLODIPINE BESYLATE. [Concomitant]
     Active Substance: AMLODIPINE BESYLATE

REACTIONS (11)
  - Cerebrovascular accident [Unknown]
  - Condition aggravated [Recovering/Resolving]
  - Renal impairment [Recovering/Resolving]
  - Amnesia [Recovered/Resolved]
  - Pain in extremity [Unknown]
  - Postoperative wound infection [Recovering/Resolving]
  - Chronic kidney disease [Recovering/Resolving]
  - Product solubility abnormal [Unknown]
  - Blood potassium decreased [Unknown]
  - Product physical issue [Unknown]
  - Lethargy [Unknown]

NARRATIVE: CASE EVENT DATE: 20180309
